FAERS Safety Report 6426819-3 (Version None)
Quarter: 2009Q4

REPORT INFORMATION
  Report Type: 
  Country: None (occurrence: None)
  Receive Date: 20091103
  Receipt Date: 20091103
  Transmission Date: 20100525
  Serious: No
  Sender: FDA-Public Use
  Company Number: None

PATIENT
  Age: 85 Year
  Sex: Male
  Weight: 98 kg

DRUGS (2)
  1. LISINOPRIL [Suspect]
     Indication: HYPERTENSION
     Dosage: 40 MG EVERYDAY PO
     Route: 048
     Dates: start: 20090428, end: 20090819
  2. LISINOPRIL [Suspect]
     Indication: PAIN
     Dosage: 200 MG UNKNOWN PO
     Route: 048
     Dates: start: 20090817, end: 20090817

REACTIONS (2)
  - ANGIOEDEMA [None]
  - SWELLING [None]
